FAERS Safety Report 13219403 (Version 3)
Quarter: 2017Q1

REPORT INFORMATION
  Report Type: Spontaneous
  Country: US (occurrence: US)
  Receive Date: 20170210
  Receipt Date: 20170324
  Transmission Date: 20170428
  Serious: No
  Sender: FDA-Public Use
  Company Number: US-ASTRAZENECA-2017SE12209

PATIENT
  Age: 23585 Day
  Sex: Male
  Weight: 122 kg

DRUGS (2)
  1. BYDUREON [Suspect]
     Active Substance: EXENATIDE
     Indication: TYPE 2 DIABETES MELLITUS
     Route: 058
     Dates: start: 2012
  2. BYETTA [Suspect]
     Active Substance: EXENATIDE
     Indication: TYPE 2 DIABETES MELLITUS
     Dosage: TWO TIMES A DAY
     Route: 058
     Dates: start: 2009, end: 2012

REACTIONS (6)
  - Device malfunction [Unknown]
  - Underdose [Unknown]
  - Injection site pain [Unknown]
  - Nervousness [Recovered/Resolved]
  - Intentional product misuse [Unknown]
  - Needle issue [Unknown]

NARRATIVE: CASE EVENT DATE: 20170130
